FAERS Safety Report 4462837-2 (Version None)
Quarter: 2004Q3

REPORT INFORMATION
  Report Type: 
  Country: None (occurrence: None)
  Receive Date: 20040927
  Receipt Date: 20040909
  Transmission Date: 20050211
  Serious: Yes (Hospitalization)
  Sender: FDA-Public Use
  Company Number: ST-2004-008072

PATIENT
  Age: 72 Year
  Sex: Female

DRUGS (9)
  1. OLEMTEC [Suspect]
     Indication: ESSENTIAL HYPERTENSION
     Dosage: 20 MG QD PO
     Route: 048
     Dates: start: 20040901, end: 20040906
  2. NORVASC [Suspect]
     Dosage: 5 MG QD PO
     Route: 048
     Dates: start: 19970515, end: 20040831
  3. DIOVAN [Suspect]
     Dosage: 80 MG QD PO
     Route: 048
     Dates: start: 20021116, end: 20040831
  4. NIFLAN [Suspect]
     Dosage: 75 MG TID PO
     Route: 048
     Dates: start: 20040723, end: 20040906
  5. ENCHININ [Suspect]
     Dosage: 1 MG TID PO
     Route: 048
     Dates: start: 20040723, end: 20040906
  6. ISOSORBIDE MONONITRATE [Concomitant]
  7. RENIVACE [Concomitant]
  8. HALCION [Concomitant]
  9. METHYCOOL [Concomitant]

REACTIONS (3)
  - ANOREXIA [None]
  - HEPATIC FUNCTION ABNORMAL [None]
  - MALAISE [None]
